FAERS Safety Report 20707920 (Version 1)
Quarter: 2022Q2

REPORT INFORMATION
  Report Type: Spontaneous
  Country: US (occurrence: US)
  Receive Date: 20220414
  Receipt Date: 20220414
  Transmission Date: 20220721
  Serious: Yes (Other)
  Sender: FDA-Public Use
  Company Number: US-SUN PHARMACEUTICAL INDUSTRIES LTD-2022R1-332327

PATIENT
  Age: 36 Year
  Sex: Female

DRUGS (2)
  1. METOPROLOL [Suspect]
     Active Substance: METOPROLOL
     Indication: Tricuspid valve stenosis
     Dosage: UNK
     Route: 048
  2. ESMOLOL [Suspect]
     Active Substance: ESMOLOL HYDROCHLORIDE
     Indication: Tricuspid valve stenosis
     Dosage: UNK
     Route: 042

REACTIONS (3)
  - Exposure during pregnancy [Unknown]
  - Ventricular tachycardia [Recovering/Resolving]
  - Live birth [Unknown]
